FAERS Safety Report 9983372 (Version 2)
Quarter: 2014Q2

REPORT INFORMATION
  Report Type: Spontaneous
  Country: GB (occurrence: GB)
  Receive Date: 20140307
  Receipt Date: 20140603
  Transmission Date: 20141212
  Serious: Yes (Life-Threatening)
  Sender: FDA-Public Use
  Company Number: GB-ACTAVIS-2014-03632

PATIENT
  Age: 81 Year
  Sex: Male
  Weight: 76 kg

DRUGS (6)
  1. AMOXICILLIN (UNKNOWN) [Suspect]
     Indication: URINARY TRACT INFECTION
     Dosage: 500 MG, TID
     Route: 048
     Dates: start: 20131214, end: 20131216
  2. FERROUS SULPHATE (UNKNOWN) [Suspect]
     Indication: PRODUCT USED FOR UNKNOWN INDICATION
     Dosage: 200 MG, TID
     Route: 048
     Dates: end: 20131228
  3. LANSOPRAZOLE (UNKNOWN) [Suspect]
     Indication: PRODUCT USED FOR UNKNOWN INDICATION
     Dosage: 30 MG, QAM
     Route: 048
     Dates: end: 20131228
  4. LACTULOSE (UNKNOWN) (LACTULOSE) UNK, UNKUNK [Suspect]
     Indication: PRODUCT USED FOR UNKNOWN INDICATION
     Dosage: 15 ML, BID
     Route: 048
     Dates: end: 20131228
  5. TAZOCIN [Suspect]
     Indication: PNEUMONIA
     Dosage: 4.5 G, UNKNOWN
     Route: 042
     Dates: start: 20131228, end: 20131231
  6. TAZOCIN [Suspect]
     Dosage: UNK
     Route: 042
     Dates: start: 20131216, end: 20131221

REACTIONS (1)
  - Clostridium difficile colitis [Not Recovered/Not Resolved]
